FAERS Safety Report 14730473 (Version 1)
Quarter: 2018Q2

REPORT INFORMATION
  Report Type: Spontaneous
  Country: US (occurrence: US)
  Receive Date: 20180406
  Receipt Date: 20180406
  Transmission Date: 20180711
  Serious: Yes (Hospitalization)
  Sender: FDA-Public Use
  Company Number: US-LUNDBECK-DKLU2039460

PATIENT
  Sex: Female

DRUGS (8)
  1. ONFI [Suspect]
     Active Substance: CLOBAZAM
     Indication: EPILEPSY
     Route: 048
     Dates: start: 201709, end: 20171018
  2. ONFI [Suspect]
     Active Substance: CLOBAZAM
     Route: 048
     Dates: start: 2017
  3. LEVETIRACETAM. [Concomitant]
     Active Substance: LEVETIRACETAM
     Indication: PRODUCT USED FOR UNKNOWN INDICATION
     Route: 065
     Dates: start: 20171016
  4. TOPIRAMATE. [Concomitant]
     Active Substance: TOPIRAMATE
     Route: 065
  5. KEPPRA XR [Concomitant]
     Active Substance: LEVETIRACETAM
     Indication: EPILEPSY
     Route: 048
  6. TROKENDI [Concomitant]
     Active Substance: TOPIRAMATE
     Indication: EPILEPSY
     Route: 065
  7. TOPIRAMATE. [Concomitant]
     Active Substance: TOPIRAMATE
     Indication: PRODUCT USED FOR UNKNOWN INDICATION
     Route: 065
  8. ONFI [Suspect]
     Active Substance: CLOBAZAM
     Route: 048
     Dates: start: 2017

REACTIONS (5)
  - Hallucination [Unknown]
  - Psychogenic seizure [Unknown]
  - Dehydration [Recovering/Resolving]
  - Fatigue [Recovering/Resolving]
  - Dizziness [Unknown]
